FAERS Safety Report 6077721-0 (Version None)
Quarter: 2009Q1

REPORT INFORMATION
  Report Type: 
  Country: None (occurrence: None)
  Receive Date: 20090213
  Receipt Date: 20090209
  Transmission Date: 20090719
  Serious: Yes (Life-Threatening)
  Sender: FDA-Public Use
  Company Number: PHBS2009NL00773

PATIENT
  Age: 32 Year
  Sex: Female

DRUGS (2)
  1. METOPROLOL TARTRATE [Suspect]
     Indication: LONG QT SYNDROME
  2. BISOPROLOL [Suspect]
     Indication: LONG QT SYNDROME

REACTIONS (7)
  - DRUG EXPOSURE DURING PREGNANCY [None]
  - ELECTROCARDIOGRAM QT PROLONGED [None]
  - IMPLANTABLE DEFIBRILLATOR INSERTION [None]
  - NORMAL NEWBORN [None]
  - SUPRAVENTRICULAR EXTRASYSTOLES [None]
  - SYNCOPE [None]
  - TORSADE DE POINTES [None]
